FAERS Safety Report 21188239 (Version 7)
Quarter: 2022Q3

REPORT INFORMATION
  Report Type: Spontaneous
  Country: CO (occurrence: CO)
  Receive Date: 20220809
  Receipt Date: 20220915
  Transmission Date: 20221027
  Serious: Yes (Other)
  Sender: FDA-Public Use
  Company Number: CO-PFIZER INC-PV202200037143

PATIENT
  Age: 69 Year
  Sex: Female

DRUGS (4)
  1. ENBREL [Suspect]
     Active Substance: ETANERCEPT
     Indication: Rheumatoid arthritis
     Dosage: 50 MG, WEEKLY
     Route: 058
     Dates: start: 2012, end: 202206
  2. ENBREL [Suspect]
     Active Substance: ETANERCEPT
     Dosage: 50 MG
     Route: 065
     Dates: start: 2010, end: 202205
  3. ENBREL [Suspect]
     Active Substance: ETANERCEPT
     Dosage: 0.5 ML 50 MG PER ML, EVERY 8 DAYS FOR 90 DAYS
     Route: 058
  4. ENBREL [Suspect]
     Active Substance: ETANERCEPT
     Dosage: 50 MG
     Route: 058

REACTIONS (11)
  - Inflammation [Unknown]
  - Arthritis [Unknown]
  - Dysstasia [Unknown]
  - Fall [Unknown]
  - Arthropathy [Recovered/Resolved]
  - Gait disturbance [Unknown]
  - Pain [Unknown]
  - Pain in extremity [Recovering/Resolving]
  - Off label use [Unknown]
  - Tuberculin test positive [Unknown]
  - Joint swelling [Unknown]

NARRATIVE: CASE EVENT DATE: 20220701
